FAERS Safety Report 8454917-1 (Version None)
Quarter: 2012Q2

REPORT INFORMATION
  Report Type: 
  Country: None (occurrence: None)
  Receive Date: 20120621
  Receipt Date: 20120618
  Transmission Date: 20120825
  Serious: No
  Sender: FDA-Public Use
  Company Number: US-PFIZER INC-2012147221

PATIENT
  Age: 83 Year
  Sex: Female
  Weight: 68.027 kg

DRUGS (4)
  1. CORTISONE ACETATE [Suspect]
     Indication: RASH
     Dosage: UNK
  2. LIVALO [Concomitant]
     Indication: BLOOD CHOLESTEROL ABNORMAL
     Dosage: 2 MG, DAILY
  3. GABAPENTIN [Suspect]
     Indication: NEUROPATHY PERIPHERAL
     Dosage: 2 CAPSULES THREE TIMES A DAY
     Dates: start: 20120101
  4. ACCUPRIL [Concomitant]
     Indication: BLOOD PRESSURE ABNORMAL
     Dosage: 20 MG, 2X/DAY

REACTIONS (2)
  - RASH [None]
  - DRUG INEFFECTIVE [None]
